FAERS Safety Report 6508673-4 (Version None)
Quarter: 2009Q4

REPORT INFORMATION
  Report Type: 
  Country: None (occurrence: None)
  Receive Date: 20091221
  Receipt Date: 20090729
  Transmission Date: 20100525
  Serious: No
  Sender: FDA-Public Use
  Company Number: US-ASTRAZENECA-2009SE06182

PATIENT
  Age: 50 Year
  Sex: Male
  Weight: 108.9 kg

DRUGS (8)
  1. CRESTOR [Suspect]
     Route: 048
  2. LORTAB [Concomitant]
     Indication: PAIN
  3. XANAX [Concomitant]
     Indication: ANXIETY
  4. DUETACT [Concomitant]
  5. GLUCOPHAGE [Concomitant]
  6. GRINIBIL [Concomitant]
     Indication: RENAL DISORDER
  7. LISINOPRIL [Concomitant]
     Indication: HYPERTENSION
  8. ASPIRIN [Concomitant]

REACTIONS (5)
  - HYPOAESTHESIA [None]
  - MUSCLE SPASMS [None]
  - MUSCULAR WEAKNESS [None]
  - NAUSEA [None]
  - URINE OUTPUT INCREASED [None]
